FAERS Safety Report 6854062-2 (Version None)
Quarter: 2010Q3

REPORT INFORMATION
  Report Type: 
  Country: None (occurrence: None)
  Receive Date: 20100717
  Receipt Date: 20080205
  Transmission Date: 20110219
  Serious: Yes (Other)
  Sender: FDA-Public Use
  Company Number: US-PFIZER INC-2007105836

PATIENT
  Sex: Female

DRUGS (1)
  1. CHANTIX [Suspect]
     Dates: start: 20071001

REACTIONS (4)
  - ARTHRALGIA [None]
  - FATIGUE [None]
  - IRRITABILITY [None]
  - MYOCARDIAL INFARCTION [None]
